FAERS Safety Report 8900169 (Version 2)
Quarter: 2012Q4

REPORT INFORMATION
  Report Type: 
  Country: US (occurrence: US)
  Receive Date: 20121109
  Receipt Date: 20121116
  Transmission Date: 20130627
  Serious: Yes (Other)
  Sender: FDA-Public Use
  Company Number: US-ALEXION PHARMACEUTICALS INC.-A201202074

PATIENT
  Sex: Female

DRUGS (3)
  1. SOLIRIS 300MG [Suspect]
     Indication: PAROXYSMAL NOCTURNAL HAEMOGLOBINURIA
     Dosage: 900 mg, q2w
     Route: 042
     Dates: start: 2008
  2. MULTIVITAMINS, PLAIN [Concomitant]
     Dosage: UNK
  3. TYLENOL [Concomitant]
     Dosage: UNK, given with Soliris

REACTIONS (1)
  - Malignant melanoma [Unknown]
